FAERS Safety Report 17850215 (Version 1)
Quarter: 2020Q2

REPORT INFORMATION
  Report Type: Spontaneous
  Country: DE (occurrence: DE)
  Receive Date: 20200602
  Receipt Date: 20200602
  Transmission Date: 20200714
  Serious: Yes (Hospitalization, Other)
  Sender: FDA-Public Use
  Company Number: DE-PFIZER INC-2020212310

PATIENT
  Age: 52 Year
  Sex: Male
  Weight: 73 kg

DRUGS (5)
  1. ALPRAZOLAM. [Suspect]
     Active Substance: ALPRAZOLAM
     Dosage: UNK
     Route: 048
  2. ALPRAZOLAM RATIOPHARM [Suspect]
     Active Substance: ALPRAZOLAM
     Indication: ANXIOLYTIC THERAPY
     Dosage: 4.5 MG, DAILY
     Route: 048
  3. ALPRAZOLAM RATIOPHARM [Suspect]
     Active Substance: ALPRAZOLAM
     Dosage: 0.75 MG, DAILY, FOR MORE THAN 20 YEARS
     Route: 048
  4. ALPRAZOLAM RATIOPHARM [Suspect]
     Active Substance: ALPRAZOLAM
     Dosage: 3 MG, DAILY, FOR MANY YEARS
     Route: 048
  5. ALPRAZOLAM RATIOPHARM [Suspect]
     Active Substance: ALPRAZOLAM
     Dosage: 8 MG, DAILY
     Route: 048

REACTIONS (6)
  - Drug tolerance [Not Recovered/Not Resolved]
  - Somnolence [Not Recovered/Not Resolved]
  - Drug dependence [Not Recovered/Not Resolved]
  - Muscle tightness [Not Recovered/Not Resolved]
  - Withdrawal syndrome [Unknown]
  - Therapeutic product effect decreased [Unknown]

NARRATIVE: CASE EVENT DATE: 20190815
